FAERS Safety Report 10222689 (Version 3)
Quarter: 2014Q3

REPORT INFORMATION
  Report Type: Report from Study
  Country: US (occurrence: US)
  Receive Date: 20140606
  Receipt Date: 20140728
  Transmission Date: 20150326
  Serious: Yes (Death, Hospitalization, Other)
  Sender: FDA-Public Use
  Company Number: US-ABBVIE-14P-163-1214102-00

PATIENT
  Age: 77 Year
  Sex: Female
  Weight: 74.91 kg

DRUGS (2)
  1. UNKNOWN STEROID [Concomitant]
     Active Substance: UNSPECIFIED INGREDIENT
     Indication: RHEUMATOID ARTHRITIS
  2. HUMIRA [Suspect]
     Active Substance: ADALIMUMAB
     Indication: RHEUMATOID ARTHRITIS
     Dates: start: 201306

REACTIONS (13)
  - Respiratory failure [Fatal]
  - Atrial fibrillation [Fatal]
  - Large intestine perforation [Not Recovered/Not Resolved]
  - Anaemia [Fatal]
  - Bronchitis [Recovered/Resolved]
  - Multi-organ failure [Fatal]
  - Arrhythmia [Not Recovered/Not Resolved]
  - Sepsis [Fatal]
  - Renal failure acute [Fatal]
  - Pneumonia [Fatal]
  - Abdominal pain [Not Recovered/Not Resolved]
  - Dyspnoea [Recovered/Resolved]
  - Hypertension [Fatal]

NARRATIVE: CASE EVENT DATE: 201312
